FAERS Safety Report 8459841-6 (Version None)
Quarter: 2012Q2

REPORT INFORMATION
  Report Type: 
  Country: None (occurrence: None)
  Receive Date: 20120622
  Receipt Date: 20120615
  Transmission Date: 20120825
  Serious: Yes (Hospitalization)
  Sender: FDA-Public Use
  Company Number: PHEH2012US012058

PATIENT
  Sex: Male

DRUGS (10)
  1. CARAFATE [Concomitant]
  2. CLONAZEPAM [Concomitant]
  3. NEXIUM [Concomitant]
  4. ZANTAC [Concomitant]
  5. ATIVAN [Concomitant]
  6. TEGRETOL [Concomitant]
  7. ZONEGRAN [Concomitant]
  8. AFINITOR [Suspect]
     Indication: TUBEROUS SCLEROSIS
     Dosage: 10 MG, QD
     Route: 048
     Dates: start: 20110501
  9. MIRALAX [Concomitant]
  10. CLONIDINE [Concomitant]

REACTIONS (1)
  - NEPHROLITHIASIS [None]
